FAERS Safety Report 18515814 (Version 1)
Quarter: 2020Q4

REPORT INFORMATION
  Report Type: Spontaneous
  Country: US (occurrence: US)
  Receive Date: 20201117
  Receipt Date: 20201117
  Transmission Date: 20210114
  Serious: Yes (Life-Threatening, Hospitalization, Disabling)
  Sender: FDA-Public Use
  Company Number: None

PATIENT
  Sex: Male
  Weight: 9.45 kg

DRUGS (4)
  1. BIO CLEANSE [Concomitant]
  2. BLUE IRON [Concomitant]
  3. TERBUTALINE [Suspect]
     Active Substance: TERBUTALINE
     Indication: PREMATURE LABOUR
  4. PROBIO 5 [Concomitant]

REACTIONS (7)
  - Foetal movement disorder [None]
  - Foetal heart rate increased [None]
  - Musculoskeletal disorder [None]
  - Cerebral haemorrhage neonatal [None]
  - Brain injury [None]
  - Seizure [None]
  - Visual field defect [None]

NARRATIVE: CASE EVENT DATE: 20191225
